FAERS Safety Report 14609832 (Version 1)
Quarter: 2018Q1

REPORT INFORMATION
  Report Type: Spontaneous
  Country: SE (occurrence: SE)
  Receive Date: 20180307
  Receipt Date: 20180307
  Transmission Date: 20180509
  Serious: Yes (Hospitalization)
  Sender: FDA-Public Use
  Company Number: SE-TEVA-2018-SE-864382

PATIENT
  Age: 68 Year
  Sex: Male

DRUGS (3)
  1. ATORVASTATIN CALCIUM AMORPHOUS [Suspect]
     Active Substance: ATORVASTATIN CALCIUM
     Route: 065
  2. TROMBYL [Suspect]
     Active Substance: ASPIRIN
     Route: 065
  3. BRILIQUE 90 MG FILMDRAGERAD TABLETT [Suspect]
     Active Substance: TICAGRELOR
     Route: 065
     Dates: start: 20171128, end: 20171203

REACTIONS (2)
  - Rash [Recovering/Resolving]
  - Pruritus [Recovering/Resolving]

NARRATIVE: CASE EVENT DATE: 20171203
